FAERS Safety Report 11618526 (Version 2)
Quarter: 2015Q4

REPORT INFORMATION
  Report Type: Spontaneous
  Country: US (occurrence: US)
  Receive Date: 20151012
  Receipt Date: 20151012
  Transmission Date: 20160304
  Serious: Yes (Other)
  Sender: FDA-Public Use
  Company Number: CHPA2015US011896

PATIENT
  Age: 75 Year
  Sex: Female

DRUGS (1)
  1. VOLTAREN [Suspect]
     Active Substance: DICLOFENAC SODIUM
     Indication: MUSCLE SPASMS
     Dosage: UNK
     Route: 061
     Dates: start: 201509

REACTIONS (5)
  - Respiratory arrest [Recovered/Resolved]
  - Asphyxia [Recovered/Resolved]
  - Drug ineffective for unapproved indication [Unknown]
  - Contusion [Not Recovered/Not Resolved]
  - Drug administered at inappropriate site [Unknown]

NARRATIVE: CASE EVENT DATE: 2015
